FAERS Safety Report 4714502-1 (Version None)
Quarter: 2005Q3

REPORT INFORMATION
  Report Type: 
  Country: None (occurrence: None)
  Receive Date: 20050705
  Receipt Date: 20050425
  Transmission Date: 20060218
  Serious: Yes (Other)
  Sender: FDA-Public Use
  Company Number: 2005-0008285

PATIENT
  Age: 43 Year
  Sex: Male
  Weight: 80.0599 kg

DRUGS (13)
  1. VIREAD [Suspect]
     Indication: HIV INFECTION
     Dosage: 300 MG, 1 IN 1 D, ORAL
     Route: 048
     Dates: start: 20040708, end: 20040727
  2. SAQUINAVIR(SAQUINAVIR) [Concomitant]
  3. KALETRA [Concomitant]
  4. ENFUVIRTIDE(ENFUVIRTIDE) [Concomitant]
  5. DAPSONE [Concomitant]
  6. AZITHROMYCIN [Concomitant]
  7. FLUCONAZOLE [Concomitant]
  8. ACYCLOVIR [Concomitant]
  9. ESOMOPRAZOLE(ESOMEPRAZOLE) [Concomitant]
  10. DILTIAZEM [Concomitant]
  11. CHLORPHENIRAMINE/PSEUDOEPHEDRINE(BECONAMINE SR) [Concomitant]
  12. KETOCONAZOLE [Concomitant]
  13. HYDROCORTISONE CREAM(HYDROCORTISONE) [Concomitant]

REACTIONS (1)
  - RENAL IMPAIRMENT [None]
